FAERS Safety Report 21881143 (Version 2)
Quarter: 2023Q1

REPORT INFORMATION
  Report Type: Spontaneous
  Country: JP (occurrence: JP)
  Receive Date: 20230118
  Receipt Date: 20230126
  Transmission Date: 20230417
  Serious: No
  Sender: FDA-Public Use
  Company Number: JP-MSD-M2023-00870

PATIENT
  Age: 78 Year
  Sex: Male

DRUGS (8)
  1. LAGEVRIO [Suspect]
     Active Substance: MOLNUPIRAVIR
     Indication: COVID-19 treatment
     Dosage: 800 MILLIGRAM, BID
     Route: 048
     Dates: start: 20230111, end: 20230116
  2. AMLODIPINE BESYLATE [Concomitant]
     Active Substance: AMLODIPINE BESYLATE
     Indication: Hypertension
     Dosage: UNK
     Route: 048
  3. SULFAMETHOXAZOLE\TRIMETHOPRIM [Concomitant]
     Active Substance: SULFAMETHOXAZOLE\TRIMETHOPRIM
     Dosage: UNK
     Route: 048
  4. TRAMADOL [Concomitant]
     Active Substance: TRAMADOL
     Indication: Cancer pain
     Dosage: UNK
     Route: 048
  5. LYRICA [Concomitant]
     Active Substance: PREGABALIN
     Indication: Neuralgia
     Dosage: UNK
     Route: 048
  6. RABEPRAZOLE SODIUM [Concomitant]
     Active Substance: RABEPRAZOLE SODIUM
     Dosage: UNK
     Route: 048
  7. DECADRON [Concomitant]
     Active Substance: DEXAMETHASONE
     Dosage: UNK
     Route: 065
  8. CALONAL [Concomitant]
     Active Substance: ACETAMINOPHEN
     Dosage: UNK
     Route: 065

REACTIONS (2)
  - Hypoaesthesia [Unknown]
  - Product use complaint [Unknown]

NARRATIVE: CASE EVENT DATE: 20230101
